FAERS Safety Report 10102192 (Version 2)
Quarter: 2014Q2

REPORT INFORMATION
  Report Type: Spontaneous
  Country: IT (occurrence: None)
  Receive Date: 20140422
  Receipt Date: 20140514
  Transmission Date: 20141212
  Serious: Yes (Congenital Anomaly, Other)
  Sender: FDA-Public Use
  Company Number: AUR-APL-2014-04726

PATIENT
  Sex: 0

DRUGS (1)
  1. ESCITALOPRAM [Suspect]
     Indication: PRODUCT USED FOR UNKNOWN INDICATION
     Dosage: 20MG (20MG, 1 IN 1 D)
     Route: 064

REACTIONS (2)
  - Congenital nose malformation [None]
  - Maternal drugs affecting foetus [None]
